FAERS Safety Report 22091106 (Version 2)
Quarter: 2023Q2

REPORT INFORMATION
  Report Type: Report from Study
  Country: US (occurrence: US)
  Receive Date: 20230314
  Receipt Date: 20230425
  Transmission Date: 20230721
  Serious: Yes (Hospitalization, Other)
  Sender: FDA-Public Use
  Company Number: US-ABBVIE-4283634

PATIENT
  Sex: Male
  Weight: 74.842 kg

DRUGS (3)
  1. HUMIRA [Suspect]
     Active Substance: ADALIMUMAB
     Indication: Psoriatic arthropathy
     Dosage: CF
     Route: 058
  2. HUMIRA [Suspect]
     Active Substance: ADALIMUMAB
     Indication: Psoriasis
  3. IBUPROFEN [Suspect]
     Active Substance: IBUPROFEN
     Indication: Pain
     Route: 065

REACTIONS (13)
  - Coronary artery occlusion [Recovered/Resolved]
  - Rib fracture [Not Recovered/Not Resolved]
  - Dyspepsia [Recovered/Resolved]
  - Procedural pain [Unknown]
  - Pulmonary mass [Not Recovered/Not Resolved]
  - Abdominal discomfort [Recovered/Resolved]
  - Hypoaesthesia [Recovering/Resolving]
  - Clavicle fracture [Not Recovered/Not Resolved]
  - Pain [Recovering/Resolving]
  - Atrial fibrillation [Unknown]
  - Fall [Recovering/Resolving]
  - Prostatomegaly [Not Recovered/Not Resolved]
  - Musculoskeletal disorder [Not Recovered/Not Resolved]

NARRATIVE: CASE EVENT DATE: 20220101
